FAERS Safety Report 8385789-1 (Version None)
Quarter: 2012Q2

REPORT INFORMATION
  Report Type: 
  Country: None (occurrence: None)
  Receive Date: 20120523
  Receipt Date: 20120523
  Transmission Date: 20120825
  Serious: Yes (Hospitalization)
  Sender: FDA-Public Use
  Company Number: None

PATIENT
  Age: 80 Year
  Sex: Female
  Weight: 51.4 kg

DRUGS (2)
  1. DAPTOMYCIN [Suspect]
     Indication: STAPHYLOCOCCAL BACTERAEMIA
     Dosage: 500MG Q48H IV BOLUS
     Route: 040
     Dates: start: 20120516, end: 20120520
  2. DAPTOMYCIN [Suspect]
     Indication: CELLULITIS STAPHYLOCOCCAL
     Dosage: 500MG Q48H IV BOLUS
     Route: 040
     Dates: start: 20120516, end: 20120520

REACTIONS (5)
  - ATRIAL FLUTTER [None]
  - LUNG INFILTRATION [None]
  - INFECTION [None]
  - INFUSION RELATED REACTION [None]
  - SUPRAVENTRICULAR TACHYCARDIA [None]
